FAERS Safety Report 4638524-4 (Version None)
Quarter: 2005Q2

REPORT INFORMATION
  Report Type: 
  Country: None (occurrence: None)
  Receive Date: 20050418
  Receipt Date: 20050418
  Transmission Date: 20051028
  Serious: No
  Sender: FDA-Public Use
  Company Number: None

PATIENT
  Sex: Male
  Weight: 77.6 kg

DRUGS (4)
  1. DAUNORUBICIN HCL [Suspect]
     Indication: ACUTE MYELOID LEUKAEMIA
     Dosage: 45 MG/M2/DAY, IV, DAYS 1-3
     Route: 042
     Dates: start: 20050131
  2. CYTARABINE [Suspect]
     Dosage: 100 MG/M2/DAY, IV, DAYS 1-7
  3. ZOSUQUIDAR - TRIHYDROCHLORIDE [Suspect]
     Dosage: 45 MG/M2/DAY, IV, DAYS 1-3
     Route: 042
  4. G-CSF [Suspect]
     Dosage: IM, START DAY AFTER THE LAST DOSE OF CYTARABINE UNTIL ANC}/= 500 CELLS FOR 3 CONSECUTIVE DAYS
     Route: 030

REACTIONS (7)
  - ARTERIOSCLEROSIS [None]
  - ELECTROCARDIOGRAM ST-T CHANGE [None]
  - ISCHAEMIC CARDIOMYOPATHY [None]
  - PYREXIA [None]
  - RESPIRATORY DISTRESS [None]
  - SEPSIS [None]
  - SINUS TACHYCARDIA [None]
